FAERS Safety Report 13463778 (Version 1)
Quarter: 2017Q2

REPORT INFORMATION
  Report Type: Spontaneous
  Country: US (occurrence: US)
  Receive Date: 20170420
  Receipt Date: 20170420
  Transmission Date: 20170830
  Serious: Yes (Other)
  Sender: FDA-Public Use
  Company Number: US-ROCHE-266514

PATIENT
  Age: 25 Year
  Sex: Female
  Weight: 53.1 kg

DRUGS (4)
  1. ACCUTANE [Suspect]
     Active Substance: ISOTRETINOIN
     Dosage: LOWERED DOSE
     Route: 048
     Dates: start: 200007, end: 20000820
  2. ACCUTANE [Suspect]
     Active Substance: ISOTRETINOIN
     Indication: ACNE
     Route: 048
     Dates: start: 200003, end: 200007
  3. BIRTH CONTROL PILLS NOS [Concomitant]
     Active Substance: UNSPECIFIED INGREDIENT
     Indication: CONTRACEPTION
     Route: 065
  4. ACCUTANE [Suspect]
     Active Substance: ISOTRETINOIN
     Route: 048
     Dates: start: 200007, end: 200007

REACTIONS (18)
  - Chapped lips [Recovering/Resolving]
  - Dry eye [Unknown]
  - Suicidal ideation [Recovering/Resolving]
  - Pain [Recovering/Resolving]
  - Haemorrhage [None]
  - Pancreatitis acute [Unknown]
  - Dyspnoea [Unknown]
  - Depression [Recovering/Resolving]
  - Anger [Recovering/Resolving]
  - Arthralgia [Recovering/Resolving]
  - Acute psychosis [Recovering/Resolving]
  - Alopecia [Recovering/Resolving]
  - Muscle spasms [Recovering/Resolving]
  - Dehydration [Recovering/Resolving]
  - Flushing [Unknown]
  - Dry mouth [Unknown]
  - Mood swings [Recovering/Resolving]
  - Epistaxis [Recovering/Resolving]

NARRATIVE: CASE EVENT DATE: 200003
